FAERS Safety Report 4714292-2 (Version None)
Quarter: 2005Q3

REPORT INFORMATION
  Report Type: 
  Country: None (occurrence: None)
  Receive Date: 20050714
  Receipt Date: 20050708
  Transmission Date: 20060218
  Serious: Yes (Hospitalization)
  Sender: FDA-Public Use
  Company Number: 2005UW10217

PATIENT
  Age: 74 Year
  Sex: Female
  Weight: 81.6 kg

DRUGS (4)
  1. NEXIUM [Suspect]
     Indication: GASTROOESOPHAGEAL REFLUX DISEASE
     Dosage: 3 CAPSULES DAILY
     Route: 048
     Dates: start: 20050627, end: 20050701
  2. PAIN MEDS [Concomitant]
  3. THYROID TAB [Concomitant]
  4. ANTIDEPRESSANT [Concomitant]

REACTIONS (3)
  - ACCIDENTAL OVERDOSE [None]
  - MEDICATION ERROR [None]
  - TRANSIENT ISCHAEMIC ATTACK [None]
